FAERS Safety Report 19579410 (Version 1)
Quarter: 2021Q3

REPORT INFORMATION
  Report Type: Spontaneous
  Country: FR (occurrence: FR)
  Receive Date: 20210720
  Receipt Date: 20210720
  Transmission Date: 20211014
  Serious: Yes (Other)
  Sender: FDA-Public Use
  Company Number: FR-JNJFOC-20210739220

PATIENT
  Age: 16 Year
  Sex: Female
  Weight: 50.1 kg

DRUGS (7)
  1. TEZACAFTOR [Concomitant]
     Active Substance: TEZACAFTOR
     Indication: CYSTIC FIBROSIS
     Dosage: 50 MG
  2. IVACAFTOR [Concomitant]
     Active Substance: IVACAFTOR
     Dosage: 150 MG
  3. XARELTO [Suspect]
     Active Substance: RIVAROXABAN
     Indication: VENOUS THROMBOSIS
     Dosage: 20 MG, QD
     Route: 048
     Dates: start: 20210413, end: 20210512
  4. ELEXACAFTOR. [Concomitant]
     Active Substance: ELEXACAFTOR
     Dosage: 100 MG
  5. TRIKAFTA [Suspect]
     Active Substance: ELEXACAFTOR\IVACAFTOR\TEZACAFTOR
  6. TEZACAFTOR [Concomitant]
     Active Substance: TEZACAFTOR
     Indication: CYSTIC FIBROSIS
     Dosage: 3 DF, OW
     Route: 048
     Dates: start: 20210323, end: 20210512
  7. IVACAFTOR [Concomitant]
     Active Substance: IVACAFTOR
     Dosage: 75 MG

REACTIONS (1)
  - Mixed liver injury [Recovered/Resolved]

NARRATIVE: CASE EVENT DATE: 20210511
